FAERS Safety Report 5821763-4 (Version None)
Quarter: 2008Q3

REPORT INFORMATION
  Report Type: 
  Country: None (occurrence: None)
  Receive Date: 20080717
  Receipt Date: 20080702
  Transmission Date: 20090109
  Serious: Yes (Hospitalization)
  Sender: FDA-Public Use
  Company Number: TCI2008A03407

PATIENT
  Age: 71 Year
  Sex: Male

DRUGS (5)
  1. ACTOS [Suspect]
     Indication: DIABETES MELLITUS
     Dosage: PER ORAL
     Route: 048
  2. BASEN (VOGLIBOSE) [Concomitant]
  3. DIOVAN [Concomitant]
  4. GLYBURIDE [Concomitant]
  5. ALLOPURINOL [Concomitant]

REACTIONS (3)
  - CARDIAC FAILURE [None]
  - GENERALISED OEDEMA [None]
  - PLEURAL EFFUSION [None]
